FAERS Safety Report 8847904 (Version 2)
Quarter: 2012Q4

REPORT INFORMATION
  Report Type: 
  Country: NL (occurrence: NL)
  Receive Date: 20121018
  Receipt Date: 20121112
  Transmission Date: 20130627
  Serious: Yes (Other)
  Sender: FDA-Public Use
  Company Number: NL-PFIZER INC-2012256856

PATIENT
  Age: 5 Year
  Sex: Female
  Weight: 28 kg

DRUGS (6)
  1. NEURONTIN [Suspect]
     Indication: WOUND ITCHING
     Dosage: 100 mg, 1x/day
     Route: 048
     Dates: start: 20121013, end: 20121015
  2. FENISTIL [Concomitant]
     Indication: WOUND ITCHING
     Dosage: 20 Gtt, 3x/day
     Route: 048
     Dates: start: 20121009
  3. PARACETAMOL [Concomitant]
     Indication: WOUND PAIN
     Dosage: 500 mg, 4x/day
     Dates: start: 20121005
  4. MORFIN [Concomitant]
     Indication: WOUND TREATMENT
     Dosage: 5 mg, 1x/day
     Dates: start: 20121005
  5. DICLOFENAC [Concomitant]
     Indication: WOUND PAIN
     Dosage: 25 mg, 3x/day
     Dates: start: 20121006
  6. MIDAZOLAM [Concomitant]
     Indication: WOUND TREATMENT
     Dosage: UNK
     Dates: start: 20121005

REACTIONS (3)
  - Amblyopia [Recovered/Resolved]
  - Diplopia [Recovered/Resolved]
  - Eye movement disorder [Recovered/Resolved]
